FAERS Safety Report 7767236-3 (Version None)
Quarter: 2011Q3

REPORT INFORMATION
  Report Type: 
  Country: None (occurrence: None)
  Receive Date: 20110922
  Receipt Date: 20110328
  Transmission Date: 20111222
  Serious: No
  Sender: FDA-Public Use
  Company Number: US-ASTRAZENECA-2011SE17507

PATIENT
  Age: 595 Month
  Sex: Male
  Weight: 101.6 kg

DRUGS (15)
  1. ASPIRIN [Concomitant]
     Indication: CARDIAC DISORDER
     Route: 048
     Dates: start: 20041101
  2. LOSARTAN K [Concomitant]
     Indication: BLOOD PRESSURE
     Route: 048
     Dates: start: 20070901
  3. ALPRAZOLAM [Concomitant]
     Indication: ANXIETY
     Route: 048
     Dates: start: 20070901
  4. TYLENOL-500 [Concomitant]
     Dates: start: 20041101
  5. COLCHICINE [Concomitant]
     Indication: GOUT
     Route: 048
     Dates: start: 20070321
  6. FELODIPINE [Concomitant]
     Dosage: 2.5 TO 5 MG
     Route: 048
     Dates: start: 20041101
  7. VARDENAFIL HYDROCHLORIDE (LEVITRA) [Concomitant]
     Dosage: 20 MG TAKE 1 HOUR PRIOR TO SEXUAL ACTIVITY MAX 1 DOSE /DAY -6 TABS /90 DAYS
     Route: 048
     Dates: start: 20061227
  8. ALLOPURINOL [Concomitant]
     Route: 048
     Dates: start: 20070901
  9. LOPRESSOR [Concomitant]
     Indication: BLOOD PRESSURE
     Route: 048
     Dates: start: 20041101
  10. HYDROCODONE BITARTRATE AND ACETAMINOPHEN [Concomitant]
     Indication: PAIN
     Dosage: 5 MG/500 MG
     Route: 048
     Dates: start: 20070901
  11. SEROQUEL [Suspect]
     Dosage: 25 MG TO 100 MG
     Route: 048
     Dates: start: 20041101
  12. FUROSEMIDE [Concomitant]
     Route: 048
     Dates: start: 20061227
  13. LOPRESSOR [Concomitant]
     Indication: CARDIAC DISORDER
     Route: 048
     Dates: start: 20041101
  14. SIMVASTATIN [Concomitant]
     Indication: BLOOD CHOLESTEROL
     Route: 048
     Dates: start: 20061227
  15. ATIVAN [Concomitant]
     Dates: start: 20041101

REACTIONS (7)
  - HEPATITIS C [None]
  - DYSPEPSIA [None]
  - PALPITATIONS [None]
  - HYPERLIPIDAEMIA [None]
  - NOCTURIA [None]
  - TYPE 2 DIABETES MELLITUS [None]
  - ESSENTIAL HYPERTENSION [None]
